FAERS Safety Report 17057138 (Version 1)
Quarter: 2019Q4

REPORT INFORMATION
  Report Type: Report from Study
  Country: JP (occurrence: JP)
  Receive Date: 20191121
  Receipt Date: 20191121
  Transmission Date: 20200122
  Serious: Yes (Hospitalization, Other)
  Sender: FDA-Public Use
  Company Number: PHJP2016JP021811

PATIENT
  Age: 12 Year
  Sex: Male
  Weight: 24.2 kg

DRUGS (11)
  1. ACELIO [Concomitant]
     Active Substance: ACETAMINOPHEN
     Indication: PYREXIA
     Dosage: 250 MG, PRN
     Route: 042
     Dates: start: 20160719, end: 20160729
  2. HEPARIN [Concomitant]
     Active Substance: HEPARIN SODIUM
     Indication: DRY SKIN
     Dosage: BID
     Route: 065
     Dates: start: 20160707, end: 20160727
  3. FLUDARABINE [Concomitant]
     Active Substance: FLUDARABINE PHOSPHATE
     Indication: ACUTE LYMPHOCYTIC LEUKAEMIA
     Dosage: 30 MG/M2, UNK
     Route: 042
     Dates: start: 20160711, end: 20160714
  4. VFEND [Concomitant]
     Active Substance: VORICONAZOLE
     Indication: INFECTION PROPHYLAXIS
     Dosage: 150 MG, BID
     Route: 048
     Dates: start: 20160702, end: 20160726
  5. PROPETO [Concomitant]
     Active Substance: PETROLATUM
     Indication: INFECTION PROPHYLAXIS
     Dosage: BID
     Route: 048
     Dates: start: 20160707, end: 20160727
  6. FIRSTCIN [Concomitant]
     Active Substance: CEFOZOPRAN HYDROCHLORIDE
     Indication: INFECTION PROPHYLAXIS
     Dosage: 0.8 G, TID
     Route: 042
     Dates: start: 20160719, end: 20160726
  7. MAGMITT [Concomitant]
     Active Substance: MAGNESIUM OXIDE
     Indication: CONSTIPATION
     Dosage: PRN
     Route: 048
     Dates: start: 20160702, end: 20160726
  8. AZUNOL [Concomitant]
     Indication: INFECTION PROPHYLAXIS
     Dosage: TID
     Route: 049
     Dates: start: 20160705, end: 20160726
  9. NONTHRON [Concomitant]
     Indication: ANTITHROMBIN III DECREASED
     Dosage: 750 U, UNK
     Route: 042
     Dates: start: 20160705
  10. CYCLOPHOSPHAMIDE. [Concomitant]
     Active Substance: CYCLOPHOSPHAMIDE
     Indication: ACUTE LYMPHOCYTIC LEUKAEMIA
     Dosage: 500 MG/M2, UNK
     Route: 042
     Dates: start: 20160711, end: 20160712
  11. KYMRIAH [Suspect]
     Active Substance: TISAGENLECLEUCEL
     Indication: ACUTE LYMPHOCYTIC LEUKAEMIA
     Dosage: TOTAL CELLS:0.4144X10^9, CTL019CELLS: 5X10^8, 1X10^8
     Route: 042
     Dates: start: 20160719, end: 20160719

REACTIONS (1)
  - Cytokine release syndrome [Recovered/Resolved]

NARRATIVE: CASE EVENT DATE: 20160721
